FAERS Safety Report 21218124 (Version 2)
Quarter: 2023Q2

REPORT INFORMATION
  Report Type: Spontaneous
  Country: US (occurrence: US)
  Receive Date: 20220816
  Receipt Date: 20230524
  Transmission Date: 20230721
  Serious: No
  Sender: FDA-Public Use
  Company Number: US-BION-010649

PATIENT
  Sex: Female

DRUGS (1)
  1. MOTRIN IB [Suspect]
     Active Substance: IBUPROFEN
     Indication: Analgesic therapy
     Dosage: STRENGTH: 200MG, 1 LIQUID GELS EVERY 2 HOURS
     Dates: start: 20220917

REACTIONS (3)
  - Drug ineffective [Not Recovered/Not Resolved]
  - Product physical consistency issue [Unknown]
  - Incorrect dose administered [Not Recovered/Not Resolved]
